FAERS Safety Report 6736205-4 (Version None)
Quarter: 2010Q2

REPORT INFORMATION
  Report Type: 
  Country: None (occurrence: None)
  Receive Date: 20100521
  Receipt Date: 20100511
  Transmission Date: 20101027
  Serious: Yes (Hospitalization)
  Sender: FDA-Public Use
  Company Number: DK-JNJFOC-20100404725

PATIENT
  Sex: Female

DRUGS (2)
  1. REMICADE [Suspect]
     Indication: RHEUMATOID ARTHRITIS
     Dosage: DOSE = 240 MG OR 250 MG
     Route: 042
  2. METHOTREXATE [Concomitant]
     Route: 048

REACTIONS (2)
  - HYDRONEPHROSIS [None]
  - UROSEPSIS [None]
